FAERS Safety Report 5826714-4 (Version None)
Quarter: 2008Q3

REPORT INFORMATION
  Report Type: 
  Country: None (occurrence: None)
  Receive Date: 20080728
  Receipt Date: 20080728
  Transmission Date: 20090109
  Serious: No
  Sender: FDA-Public Use
  Company Number: None

PATIENT

DRUGS (2)
  1. ACCUHIST DROPS [Suspect]
  2. ACCUHIST PDX DROPS [Suspect]

REACTIONS (1)
  - DRUG PRESCRIBING ERROR [None]
